FAERS Safety Report 4518983-8 (Version None)
Quarter: 2004Q4

REPORT INFORMATION
  Report Type: 
  Country: None (occurrence: None)
  Receive Date: 20041203
  Receipt Date: 20041203
  Transmission Date: 20050328
  Serious: Yes (Disabling, Other)
  Sender: FDA-Public Use
  Company Number: None

PATIENT
  Age: 28 Year
  Sex: Female
  Weight: 58.9676 kg

DRUGS (4)
  1. NORFLOXACIN [Suspect]
     Indication: PNEUMONIA
     Dates: start: 19931001, end: 19931101
  2. NORFLOXACIN [Suspect]
     Indication: URINARY TRACT INFECTION
     Dates: start: 19931001, end: 19931101
  3. NORFLOXACIN [Suspect]
     Indication: PNEUMONIA
     Dates: start: 19971101, end: 19971102
  4. NORFLOXACIN [Suspect]
     Indication: URINARY TRACT INFECTION
     Dates: start: 19971101, end: 19971102

REACTIONS (5)
  - BIPOLAR DISORDER [None]
  - HALLUCINATION [None]
  - INSOMNIA [None]
  - THINKING ABNORMAL [None]
  - TREMOR [None]
